FAERS Safety Report 11281317 (Version 2)
Quarter: 2015Q3

REPORT INFORMATION
  Report Type: Spontaneous
  Country: CN (occurrence: CN)
  Receive Date: 20150717
  Receipt Date: 20150813
  Transmission Date: 20151125
  Serious: Yes (Other)
  Sender: FDA-Public Use
  Company Number: CN-AMGEN-CHNOT2015071845

PATIENT
  Age: 33 Year
  Sex: Male

DRUGS (2)
  1. GRAN [Suspect]
     Active Substance: FILGRASTIM
     Indication: ACUTE LEUKAEMIA
     Dosage: 100 MUG, QD
     Route: 058
     Dates: start: 20150115, end: 20150115
  2. VORICONAZOLE. [Concomitant]
     Active Substance: VORICONAZOLE
     Dosage: 0.2 G, QD
     Route: 041
     Dates: start: 20150115, end: 20150115

REACTIONS (5)
  - Palpitations [Recovering/Resolving]
  - Vomiting [Recovering/Resolving]
  - Feeling abnormal [Recovering/Resolving]
  - Oxygen saturation decreased [Recovering/Resolving]
  - Chest discomfort [Recovering/Resolving]

NARRATIVE: CASE EVENT DATE: 20150115
